FAERS Safety Report 6163700-1 (Version None)
Quarter: 2009Q2

REPORT INFORMATION
  Report Type: 
  Country: None (occurrence: None)
  Receive Date: 20090420
  Receipt Date: 20090212
  Transmission Date: 20091009
  Serious: Yes (Other)
  Sender: FDA-Public Use
  Company Number: SPV1-2009-00239

PATIENT

DRUGS (1)
  1. LIALDA [Suspect]
     Dosage: ORAL
     Route: 048
     Dates: start: 20081101, end: 20081201

REACTIONS (1)
  - PANCREATITIS [None]
